FAERS Safety Report 6467320-0 (Version None)
Quarter: 2009Q4

REPORT INFORMATION
  Report Type: 
  Country: None (occurrence: None)
  Receive Date: 20091202
  Receipt Date: 20091123
  Transmission Date: 20100525
  Serious: No
  Sender: FDA-Public Use
  Company Number: GB-ELI_LILLY_AND_COMPANY-GB200910007500

PATIENT
  Sex: Female
  Weight: 94 kg

DRUGS (15)
  1. BYETTA [Suspect]
     Indication: TYPE 2 DIABETES MELLITUS
     Dosage: 10 UG, UNKNOWN
     Route: 058
     Dates: start: 20090916
  2. MIRTAZAPINE [Concomitant]
     Dosage: 30 MG, DAILY (1/D)
  3. PROCHLORPERAZINE [Concomitant]
     Dosage: 5 MG, 3/D
  4. FIBRATES [Concomitant]
     Dosage: 200 MG, 3/D
  5. FUROSEMIDE [Concomitant]
     Dosage: 2 (40 MG), EACH MORNING
  6. METFORMIN HCL [Concomitant]
     Dosage: 1 G, 2/D
  7. LANSOPRAZOLE [Concomitant]
     Dosage: 15 MG, DAILY (1/D)
  8. ASPIRIN [Concomitant]
     Dosage: 75 MG, DAILY (1/D)
  9. SIMVASTATIN [Concomitant]
     Dosage: 40 MG, 2/D
  10. CANDESARTAN CILEXETIL [Concomitant]
     Dosage: 8 MG, DAILY (1/D)
  11. GLICLAZIDE [Concomitant]
     Dosage: 160 MG, 2/D
  12. HEXOBENDINE [Concomitant]
  13. TROSPIUM [Concomitant]
     Dosage: 20 MG, 2/D
  14. CO-CODAMOL [Concomitant]
     Dosage: 1 (30MG+500MG), 4/D
  15. TETRABENAZINE [Concomitant]
     Dosage: 25 MG, DAILY (1/D)

REACTIONS (1)
  - AGGRESSION [None]
